FAERS Safety Report 18381465 (Version 1)
Quarter: 2020Q4

REPORT INFORMATION
  Report Type: Spontaneous
  Country: CN (occurrence: CN)
  Receive Date: 20201014
  Receipt Date: 20201014
  Transmission Date: 20210114
  Serious: Yes (Death)
  Sender: FDA-Public Use
  Company Number: CN-ASTRAZENECA-2020SF31572

PATIENT
  Age: 74 Year
  Sex: Male
  Weight: 65 kg

DRUGS (2)
  1. IMFINZI [Suspect]
     Active Substance: DURVALUMAB
     Indication: NON-SMALL CELL LUNG CANCER STAGE III
     Dosage: SPECIFICATIONS WERE 500MG / 10ML, 120MG / 2.4ML) FOR TWO CYCLES, THE LAST DOSE WAS 620MG / CYCLE
     Route: 042
     Dates: start: 20200402, end: 20200415
  2. IMFINZI [Suspect]
     Active Substance: DURVALUMAB
     Indication: NON-SMALL CELL LUNG CANCER
     Dosage: SPECIFICATIONS WERE 500MG / 10ML, 120MG / 2.4ML) FOR TWO CYCLES, THE LAST DOSE WAS 620MG / CYCLE
     Route: 042
     Dates: start: 20200402, end: 20200415

REACTIONS (1)
  - Death [Fatal]

NARRATIVE: CASE EVENT DATE: 202008
